FAERS Safety Report 5830405-3 (Version None)
Quarter: 2008Q3

REPORT INFORMATION
  Report Type: 
  Country: None (occurrence: None)
  Receive Date: 20080801
  Receipt Date: 20080722
  Transmission Date: 20090109
  Serious: Yes (Hospitalization)
  Sender: FDA-Public Use
  Company Number: US-JNJFOC-20080705277

PATIENT
  Sex: Female
  Weight: 72.58 kg

DRUGS (11)
  1. REMICADE [Suspect]
     Route: 042
  2. REMICADE [Suspect]
     Indication: IRITIS
     Route: 042
  3. REMICADE [Suspect]
     Indication: ANKYLOSING SPONDYLITIS
     Route: 042
  4. PRED FORTE [Concomitant]
     Indication: IRITIS
  5. PREDNISONE [Concomitant]
     Indication: IRITIS
  6. EFFEXOR [Concomitant]
     Indication: DEPRESSION
  7. CELEBREX [Concomitant]
     Indication: ANKYLOSING SPONDYLITIS
  8. CELEBREX [Concomitant]
     Indication: PAIN
  9. STEROID INJECTION [Concomitant]
     Indication: IRITIS
  10. EYE DROPS [Concomitant]
     Indication: IRITIS
  11. MEDROL [Concomitant]

REACTIONS (8)
  - AGITATION [None]
  - AMNESIA [None]
  - CONVULSION [None]
  - FORMICATION [None]
  - HEART RATE INCREASED [None]
  - PRESSURE OF SPEECH [None]
  - PSYCHOTIC DISORDER [None]
  - SPEECH DISORDER [None]
